FAERS Safety Report 6227393-7 (Version None)
Quarter: 2009Q2

REPORT INFORMATION
  Report Type: 
  Country: None (occurrence: None)
  Receive Date: 20090610
  Receipt Date: 20090610
  Transmission Date: 20091009
  Serious: Yes (Hospitalization)
  Sender: FDA-Public Use
  Company Number: None

PATIENT
  Age: 63 Year
  Sex: Male
  Weight: 132.9 kg

DRUGS (1)
  1. METOPROLOL SUCCINATE [Suspect]
     Indication: HYPERTENSION
     Dosage: 50 MG BID PO
     Route: 048
     Dates: start: 20090310, end: 20090602

REACTIONS (2)
  - PRODUCT SUBSTITUTION ISSUE [None]
  - RASH [None]
